FAERS Safety Report 12865370 (Version 1)
Quarter: 2016Q4

REPORT INFORMATION
  Report Type: Report from Study
  Country: DE (occurrence: DE)
  Receive Date: 20161020
  Receipt Date: 20161020
  Transmission Date: 20170207
  Serious: Yes (Life-Threatening, Hospitalization)
  Sender: FDA-Public Use
  Company Number: DE-CELGENEUS-DEU-2015090787

PATIENT
  Age: 66 Year
  Sex: Male

DRUGS (8)
  1. GEMCITABINE [Suspect]
     Active Substance: GEMCITABINE\GEMCITABINE HYDROCHLORIDE
     Indication: PANCREATIC CARCINOMA
     Route: 065
     Dates: start: 20150828
  2. KCL [Concomitant]
     Active Substance: POTASSIUM CHLORIDE
     Indication: PRODUCT USED FOR UNKNOWN INDICATION
     Dosage: 40MVAL
     Route: 041
     Dates: start: 20150815, end: 20150816
  3. CALCIUM [Concomitant]
     Active Substance: CALCIUM
     Indication: ELECTROLYTE SUBSTITUTION THERAPY
     Route: 048
     Dates: start: 20150806, end: 20150811
  4. ABRAXANE [Suspect]
     Active Substance: PACLITAXEL
     Route: 041
     Dates: start: 20150828
  5. PANTOZOL [Concomitant]
     Active Substance: PANTOPRAZOLE SODIUM
     Indication: GASTRITIS PROPHYLAXIS
     Route: 048
     Dates: end: 20150818
  6. KALINOR-BRAUSETABLETTEN [Concomitant]
     Active Substance: POTASSIUM CARBONATE\POTASSIUM CITRATE
     Indication: ELECTROLYTE SUBSTITUTION THERAPY
     Route: 048
     Dates: end: 20150818
  7. KREON [Concomitant]
     Active Substance: PANCRELIPASE
     Indication: ENZYME SUPPLEMENTATION
     Route: 048
     Dates: start: 20150806, end: 20150811
  8. ABRAXANE [Suspect]
     Active Substance: PACLITAXEL
     Indication: PANCREATIC CARCINOMA
     Route: 041
     Dates: start: 20150722, end: 20150805

REACTIONS (7)
  - Fatigue [Recovered/Resolved]
  - Vomiting [Recovered/Resolved]
  - Diarrhoea [Recovered/Resolved]
  - Dry skin [Recovered/Resolved]
  - Diarrhoea [Recovered/Resolved]
  - Ileal perforation [Recovered/Resolved]
  - Nausea [Recovered/Resolved]

NARRATIVE: CASE EVENT DATE: 20150729
